FAERS Safety Report 10103075 (Version 2)
Quarter: 2014Q2

REPORT INFORMATION
  Report Type: Other
  Country: US (occurrence: US)
  Receive Date: 20140424
  Receipt Date: 20140604
  Transmission Date: 20141212
  Serious: Yes (Hospitalization, Other)
  Sender: FDA-Public Use
  Company Number: US-GSKPPD-2014GSK000119

PATIENT
  Age: 44 Year
  Sex: Male

DRUGS (4)
  1. AVANDIA [Suspect]
     Indication: DIABETES MELLITUS
     Dosage: AVANDIA WAS NOT LISTED AMONG THE PATIENT^S DISCHARGE RECORDS.
     Route: 048
  2. ASPIRIN [Concomitant]
     Route: 048
     Dates: start: 200405
  3. PLAVIX [Concomitant]
     Route: 048
     Dates: start: 200405
  4. DEMADEX [Concomitant]
     Route: 048
     Dates: start: 200405

REACTIONS (2)
  - Myocardial infarction [None]
  - Cardiac failure congestive [Recovered/Resolved]
